FAERS Safety Report 24155581 (Version 1)
Quarter: 2024Q3

REPORT INFORMATION
  Report Type: Report from Study
  Country: IN (occurrence: IN)
  Receive Date: 20240731
  Receipt Date: 20240731
  Transmission Date: 20241016
  Serious: Yes (Hospitalization, Other)
  Sender: NOVARTIS
  Company Number: IN-002147023-NVSC2023IN280044

PATIENT
  Sex: Male

DRUGS (1)
  1. TASIGNA [Suspect]
     Active Substance: NILOTINIB
     Indication: Chronic myeloid leukaemia
     Dosage: 400 MG, BID
     Route: 048
     Dates: start: 20150706

REACTIONS (9)
  - Pneumonia [Unknown]
  - Type 2 diabetes mellitus [Unknown]
  - Lower respiratory tract infection [Unknown]
  - Philadelphia chromosome positive [Unknown]
  - Laboratory test abnormal [Unknown]
  - General physical health deterioration [Unknown]
  - Hypertension [Unknown]
  - Diabetic retinopathy [Unknown]
  - Diabetic nephropathy [Unknown]
